FAERS Safety Report 14007393 (Version 23)
Quarter: 2021Q1

REPORT INFORMATION
  Report Type: Report from Study
  Country: CA (occurrence: CA)
  Receive Date: 20170925
  Receipt Date: 20210319
  Transmission Date: 20210419
  Serious: Yes (Hospitalization, Other)
  Sender: FDA-Public Use
  Company Number: PHHY2014CA014290

PATIENT
  Age: 66 Year
  Sex: Male

DRUGS (37)
  1. TEVA?DUTASTERIDE [Concomitant]
     Indication: PROSTATIC DISORDER
     Dosage: 1 UNK, QD
     Route: 048
  2. SANDOZ AMLODIPINE [Concomitant]
     Active Substance: AMLODIPINE MALEATE
     Indication: BLOOD PRESSURE ABNORMAL
     Dosage: UNK, QD
     Route: 048
  3. EURO DOCUSATE C [Concomitant]
     Indication: CONSTIPATION
     Dosage: UNK UNK, BID
     Route: 048
  4. INSULIN [Concomitant]
     Active Substance: INSULIN NOS
     Indication: PRODUCT USED FOR UNKNOWN INDICATION
     Dosage: UNK (100 U/ML)
     Route: 065
  5. MB 12 [Concomitant]
     Active Substance: METHYLCOBALAMIN
     Indication: VITAMIN SUPPLEMENTATION
     Dosage: UNK UNK, QD
     Route: 048
  6. PIOGLITAZONE. [Concomitant]
     Active Substance: PIOGLITAZONE
     Indication: PRODUCT USED FOR UNKNOWN INDICATION
     Dosage: UNK, QD
     Route: 065
  7. APO?FUROSEMIDE [Concomitant]
     Active Substance: FUROSEMIDE
     Indication: BLOOD PRESSURE ABNORMAL
     Dosage: UNK, QD
     Route: 048
  8. APO QUETIAPINE [Concomitant]
     Active Substance: QUETIAPINE
     Indication: SLEEP DISORDER
     Dosage: UNK (1/2 PILL 12.5 MG 1X PER DAY PM)
     Route: 048
  9. MICARDIS PLUS [Concomitant]
     Active Substance: HYDROCHLOROTHIAZIDE\TELMISARTAN
     Indication: PRODUCT USED FOR UNKNOWN INDICATION
     Dosage: UNK, QD
     Route: 065
  10. METFORMIN [Concomitant]
     Active Substance: METFORMIN HYDROCHLORIDE
     Indication: PRODUCT USED FOR UNKNOWN INDICATION
     Dosage: UNK, BID
     Route: 065
  11. MUPIROCIN. [Concomitant]
     Active Substance: MUPIROCIN
     Indication: MASS
     Dosage: UNK
     Route: 065
  12. SANDOSTATIN LAR DEPOT [Suspect]
     Active Substance: OCTREOTIDE ACETATE
  13. CAL.D [Concomitant]
     Indication: OSTEOPOROSIS
     Dosage: 1 DF, BID (500 MG+400 UI PILL 1 PILL 2 X A DAY AT DINNER)
     Route: 065
  14. INDAPAMIDE. [Concomitant]
     Active Substance: INDAPAMIDE
     Indication: HYPERTENSION
     Dosage: 1 DF, QD
     Route: 048
     Dates: start: 2019
  15. TEVA TAMSULOSIN CR [Concomitant]
     Indication: PROSTATIC DISORDER
     Dosage: 1 UNK, QD
     Route: 048
  16. APO GABAPENTIN [Concomitant]
     Active Substance: GABAPENTIN
     Indication: PAIN
     Dosage: UNK, QD
     Route: 048
  17. JAMP SENNA S [Concomitant]
     Indication: CONSTIPATION
     Dosage: UNK, QD
     Route: 048
  18. OXAZEPAM. [Concomitant]
     Active Substance: OXAZEPAM
     Indication: SLEEP DISORDER
     Dosage: 1 DF, OTHER
     Route: 048
  19. SANDOSTATIN LAR DEPOT [Suspect]
     Active Substance: OCTREOTIDE ACETATE
     Indication: ACROMEGALY
     Dosage: 20 MG, QMO (EVERY 4 WEEKS)
     Route: 030
     Dates: start: 20070614
  20. TRANDOLAPRIL. [Concomitant]
     Active Substance: TRANDOLAPRIL
     Indication: BLOOD PRESSURE ABNORMAL
     Dosage: UNK, QD
     Route: 048
  21. JANUVIA [Concomitant]
     Active Substance: SITAGLIPTIN PHOSPHATE
     Indication: DIABETES MELLITUS
     Dosage: UNK UNK, QD (PILL)
     Route: 048
  22. LANTUS [Concomitant]
     Active Substance: INSULIN GLARGINE
     Indication: PRODUCT USED FOR UNKNOWN INDICATION
     Dosage: UNK UNK, QD
     Route: 058
  23. IRON [Concomitant]
     Active Substance: IRON
     Indication: PRODUCT USED FOR UNKNOWN INDICATION
     Dosage: UNK
     Route: 065
     Dates: start: 201701
  24. RIVA?BACLOFEN [Concomitant]
     Indication: MUSCLE SPASMS
     Dosage: UNK, QD
     Route: 048
  25. RIVA?BACLOFEN [Concomitant]
     Dosage: UNK 1? MG PILL 2 PILLS 5 MG 1X PER DAY AT BEDTIME
     Route: 048
  26. ASA [Concomitant]
     Active Substance: ASPIRIN
     Indication: PRODUCT USED FOR UNKNOWN INDICATION
     Dosage: UNK, QD
     Route: 065
  27. SANDOSTATIN LAR DEPOT [Suspect]
     Active Substance: OCTREOTIDE ACETATE
  28. IRON SULFATE [Concomitant]
     Active Substance: FERROUS SULFATE ANHYDROUS
     Indication: PRODUCT USED FOR UNKNOWN INDICATION
     Dosage: 1 DF, QD
     Route: 065
  29. SANDOZ?METFORMIN FC [Concomitant]
     Active Substance: METFORMIN HYDROCHLORIDE
     Indication: DIABETES MELLITUS
     Dosage: 850 MG, BID
     Route: 065
  30. DIABETA [Concomitant]
     Active Substance: GLYBURIDE
     Indication: PRODUCT USED FOR UNKNOWN INDICATION
     Dosage: 2 DF, BID
     Route: 065
  31. PANTOPRAZOLE [Concomitant]
     Active Substance: PANTOPRAZOLE
     Indication: GASTROINTESTINAL DISORDER
     Dosage: UNK, QD
     Route: 048
  32. AMLODIPINE [Concomitant]
     Active Substance: AMLODIPINE BESYLATE
     Indication: BLOOD PRESSURE ABNORMAL
     Dosage: UNK, QD (5MG TOGETHER WITH SANDOZ.A 2.5 MG TO EQUAL 7.5 MG)
     Route: 065
  33. LASIX [Concomitant]
     Active Substance: FUROSEMIDE
     Indication: HYPERTENSION
     Dosage: 1 DF, QD
     Route: 048
     Dates: start: 2019, end: 2019
  34. RAN ATORVASTATIN [Concomitant]
     Indication: BLOOD CHOLESTEROL ABNORMAL
     Dosage: UNK, QD (AT DINNER TIME), 1X/DAY AT SUPPER
     Route: 048
  35. LIPITOR [Concomitant]
     Active Substance: ATORVASTATIN CALCIUM
     Indication: PRODUCT USED FOR UNKNOWN INDICATION
     Dosage: UNK
     Route: 065
  36. EMOLAX [Concomitant]
     Indication: CONSTIPATION
     Dosage: UNK, BID 1G/G POWDER TAKEN ORALLY 17 G IN LIQUID AND DRINK 2X PER DAY IF NEEDED (DISSOLVE 17G POWDER
     Route: 048
  37. NOVO?GABAPENTIN [Concomitant]
     Indication: PAIN
     Dosage: UNK, QD
     Route: 048

REACTIONS (22)
  - Scratch [Unknown]
  - Post procedural complication [Unknown]
  - Injury [Unknown]
  - Anaemia [Unknown]
  - Oropharyngeal pain [Unknown]
  - Prostatomegaly [Unknown]
  - Procedural pain [Unknown]
  - Heart rate decreased [Unknown]
  - Blood pressure increased [Unknown]
  - Fall [Unknown]
  - Cardiac arrest [Unknown]
  - Loss of consciousness [Unknown]
  - Arthralgia [Unknown]
  - Contusion [Unknown]
  - Chills [Unknown]
  - Bone marrow disorder [Unknown]
  - Musculoskeletal pain [Unknown]
  - Vomiting [Unknown]
  - Injection site pain [Recovering/Resolving]
  - Tremor [Unknown]
  - Infection [Unknown]
  - Blister [Unknown]

NARRATIVE: CASE EVENT DATE: 20140122
